FAERS Safety Report 9034160 (Version 1)
Quarter: 2013Q1

REPORT INFORMATION
  Report Type: Spontaneous
  Country: US (occurrence: None)
  Receive Date: 20130114
  Receipt Date: 20130114
  Transmission Date: 20140127
  Serious: Yes (Hospitalization)
  Sender: FDA-Public Use
  Company Number: 2013010058

PATIENT
  Age: 62 Year
  Sex: Female

DRUGS (15)
  1. TORASEMIDE [Suspect]
     Indication: HYPERTENSION
     Route: 048
     Dates: start: 201006
  2. LOSARTAN (LOSARTAN) [Suspect]
     Indication: HYPERTENSION
     Route: 048
     Dates: start: 201103
  3. TEKTURNA [Suspect]
     Indication: HYPERTENSION
     Dates: start: 2009
  4. CLONIDINE (CLONIDINE) [Concomitant]
  5. VITAMIN D (ERGOCALCIFEROL) [Concomitant]
  6. TYLENOL (PARACETAMOL) [Concomitant]
  7. CALCITRIOL (CALCITRIOL) [Concomitant]
  8. PREDNISONE (PREDNISONE) [Concomitant]
  9. NOVOLOG (INSULIN ASPART) [Concomitant]
  10. LANTUS (INSULIN GLARGINE) [Concomitant]
  11. FISH OIL (FISH OIL) [Concomitant]
  12. COLCHICINE (COLCHICINE) [Concomitant]
  13. MAGNESIUM OXIDE (MAGNESIUM OXIDE) [Concomitant]
  14. IRBESARTAN HEXAL (IRBESARTAN) [Concomitant]
  15. MORPHINE [Concomitant]

REACTIONS (8)
  - Oedema peripheral [None]
  - Nausea [None]
  - Vomiting [None]
  - Pneumonia [None]
  - Sinus tachycardia [None]
  - Gout [None]
  - Renal failure acute [None]
  - Splenic neoplasm malignancy unspecified [None]
